FAERS Safety Report 7606673-4 (Version None)
Quarter: 2011Q3

REPORT INFORMATION
  Report Type: 
  Country: None (occurrence: None)
  Receive Date: 20110713
  Receipt Date: 20110704
  Transmission Date: 20111222
  Serious: Yes (Other)
  Sender: FDA-Public Use
  Company Number: JP-ROCHE-735847

PATIENT
  Sex: Male
  Weight: 45 kg

DRUGS (30)
  1. CAPECITABINE [Suspect]
     Route: 048
     Dates: start: 20100621, end: 20100705
  2. CAPECITABINE [Suspect]
     Route: 048
     Dates: start: 20100830, end: 20100912
  3. BEVACIZUMAB [Suspect]
     Route: 041
     Dates: start: 20110113, end: 20110113
  4. BEVACIZUMAB [Suspect]
     Route: 041
     Dates: start: 20110203, end: 20110203
  5. OXALIPLATIN [Suspect]
     Route: 041
     Dates: start: 20101122, end: 20101122
  6. CAPECITABINE [Suspect]
     Route: 048
     Dates: start: 20100809, end: 20100823
  7. BEVACIZUMAB [Suspect]
     Indication: RECTAL CANCER METASTATIC
     Route: 041
     Dates: start: 20100531, end: 20100531
  8. OXALIPLATIN [Suspect]
     Route: 041
     Dates: start: 20100809, end: 20100809
  9. CAPECITABINE [Suspect]
     Indication: RECTAL CANCER METASTATIC
     Route: 048
     Dates: start: 20100531, end: 20100613
  10. BEVACIZUMAB [Suspect]
     Route: 041
     Dates: start: 20101101, end: 20101101
  11. OXALIPLATIN [Suspect]
     Route: 041
     Dates: start: 20110113, end: 20110113
  12. CAPECITABINE [Suspect]
     Route: 048
     Dates: start: 20101101, end: 20101115
  13. CAPECITABINE [Suspect]
     Route: 048
     Dates: start: 20110203, end: 20110217
  14. BEVACIZUMAB [Suspect]
     Route: 041
     Dates: start: 20100621, end: 20100621
  15. BEVACIZUMAB [Suspect]
     Route: 041
     Dates: start: 20100809, end: 20100809
  16. BEVACIZUMAB [Suspect]
     Route: 041
     Dates: start: 20101122, end: 20101122
  17. BEVACIZUMAB [Suspect]
     Route: 041
     Dates: start: 20101213, end: 20101213
  18. OXALIPLATIN [Suspect]
     Route: 041
     Dates: start: 20110203, end: 20110203
  19. OXALIPLATIN [Suspect]
     Indication: RECTAL CANCER METASTATIC
     Route: 041
     Dates: start: 20100531, end: 20110531
  20. OXALIPLATIN [Suspect]
     Route: 041
     Dates: start: 20100621, end: 20100621
  21. OXALIPLATIN [Suspect]
     Route: 041
     Dates: start: 20100830, end: 20100830
  22. CAPECITABINE [Suspect]
     Route: 048
     Dates: start: 20101012, end: 20101026
  23. CAPECITABINE [Suspect]
     Route: 048
     Dates: start: 20101122, end: 20101206
  24. BEVACIZUMAB [Suspect]
     Route: 041
     Dates: start: 20100830, end: 20100830
  25. BEVACIZUMAB [Suspect]
     Route: 041
     Dates: start: 20101012, end: 20101012
  26. CAPECITABINE [Suspect]
     Route: 048
     Dates: start: 20101213, end: 20101227
  27. CAPECITABINE [Suspect]
     Route: 048
     Dates: start: 20110113, end: 20110127
  28. OXALIPLATIN [Suspect]
     Route: 041
     Dates: start: 20101012, end: 20101012
  29. OXALIPLATIN [Suspect]
     Route: 041
     Dates: start: 20101101, end: 20101101
  30. OXALIPLATIN [Suspect]
     Route: 041
     Dates: start: 20101213, end: 20101213

REACTIONS (1)
  - BLOOD BILIRUBIN INCREASED [None]
